FAERS Safety Report 13836137 (Version 1)
Quarter: 2017Q3

REPORT INFORMATION
  Report Type: Spontaneous
  Country: US (occurrence: US)
  Receive Date: 20170804
  Receipt Date: 20170804
  Transmission Date: 20171127
  Serious: No
  Sender: FDA-Public Use
  Company Number: US-PFIZER INC-2017332350

PATIENT
  Age: 60 Year
  Sex: Female

DRUGS (4)
  1. VYVANSE [Concomitant]
     Active Substance: LISDEXAMFETAMINE DIMESYLATE
     Indication: ATTENTION DEFICIT/HYPERACTIVITY DISORDER
     Dosage: 40 MG, 1X/DAY
  2. XANAX XR [Suspect]
     Active Substance: ALPRAZOLAM
     Indication: SLEEP DISORDER
  3. VIIBRYD [Concomitant]
     Active Substance: VILAZODONE HYDROCHLORIDE
     Indication: DEPRESSION
     Dosage: 40 MG, 1X/DAY
  4. XANAX XR [Suspect]
     Active Substance: ALPRAZOLAM
     Indication: ANXIETY
     Dosage: 0.5 MG, 1X/DAY

REACTIONS (7)
  - Dry mouth [Not Recovered/Not Resolved]
  - Saliva altered [Unknown]
  - Tongue discolouration [Unknown]
  - Stomatitis [Unknown]
  - Oral discomfort [Unknown]
  - Cough [Unknown]
  - Tongue discomfort [Unknown]

NARRATIVE: CASE EVENT DATE: 201701
